FAERS Safety Report 20210737 (Version 1)
Quarter: 2021Q4

REPORT INFORMATION
  Report Type: Spontaneous
  Country: US (occurrence: US)
  Receive Date: 20211221
  Receipt Date: 20211221
  Transmission Date: 20220304
  Serious: Yes (Hospitalization, Other)
  Sender: FDA-Public Use
  Company Number: US-LUPIN PHARMACEUTICALS INC.-2021-25090

PATIENT
  Age: 74 Year
  Sex: Male

DRUGS (2)
  1. METHYLPREDNISOLONE [Suspect]
     Active Substance: METHYLPREDNISOLONE
     Indication: Arthritis
     Dosage: 40 MILLIGRAM, INJECTION
     Route: 014
  2. LIDOCAINE [Concomitant]
     Active Substance: LIDOCAINE
     Indication: Arthritis
     Dosage: 5 MILLILITER
     Route: 014

REACTIONS (6)
  - Bursitis infective [Recovering/Resolving]
  - Tendonitis [Recovering/Resolving]
  - Staphylococcal infection [Recovering/Resolving]
  - Arthralgia [Unknown]
  - Groin pain [Unknown]
  - Condition aggravated [Unknown]
